FAERS Safety Report 9441038 (Version 1)
Quarter: 2013Q3

REPORT INFORMATION
  Report Type: Spontaneous
  Country: US (occurrence: US)
  Receive Date: 20130805
  Receipt Date: 20130805
  Transmission Date: 20140515
  Serious: Yes (Other)
  Sender: FDA-Public Use
  Company Number: PHHY2013US081746

PATIENT
  Age: 81 Year
  Sex: Female

DRUGS (7)
  1. ACETYLSALICYLIC ACID [Suspect]
     Indication: HEADACHE
     Route: 048
  2. BENEFIBER [Concomitant]
     Indication: CONSTIPATION
  3. MIRALAX [Concomitant]
     Indication: HEADACHE
  4. NASACOR [Concomitant]
     Indication: NASAL POLYPS
  5. EXCEDRIN [Concomitant]
     Indication: HEADACHE
  6. TYLENOL [Concomitant]
     Indication: HEADACHE
  7. PREDNISONE [Concomitant]
     Indication: NASAL POLYPS

REACTIONS (3)
  - Vaginal haemorrhage [Recovered/Resolved]
  - Drug hypersensitivity [Unknown]
  - Incorrect drug administration duration [Unknown]
